FAERS Safety Report 4456355-5 (Version None)
Quarter: 2004Q3

REPORT INFORMATION
  Report Type: 
  Country: None (occurrence: None)
  Receive Date: 20040917
  Receipt Date: 20040906
  Transmission Date: 20050211
  Serious: Yes (Hospitalization)
  Sender: FDA-Public Use
  Company Number: 2004062994

PATIENT
  Age: 14 Year
  Sex: Female

DRUGS (1)
  1. BENADRYL [Suspect]
     Indication: SUICIDE ATTEMPT
     Dosage: 15 TABLETS ONCE,  ORAL
     Route: 048
     Dates: start: 20040906, end: 20040906

REACTIONS (5)
  - HEADACHE [None]
  - HEART RATE INCREASED [None]
  - INTENTIONAL OVERDOSE [None]
  - SUICIDE ATTEMPT [None]
  - VOMITING [None]
